FAERS Safety Report 12768363 (Version 1)
Quarter: 2016Q3

REPORT INFORMATION
  Report Type: Other
  Country: US (occurrence: US)
  Receive Date: 20160921
  Receipt Date: 20160921
  Transmission Date: 20161109
  Serious: Yes (Hospitalization)
  Sender: FDA-Public Use
  Company Number: US-FRI-1000087650

PATIENT
  Age: 74 Year
  Sex: Female

DRUGS (1)
  1. CEFTAROLINE FOSAMIL [Suspect]
     Active Substance: CEFTAROLINE FOSAMIL
     Indication: INFECTIVE ANEURYSM
     Dosage: 1200 MG

REACTIONS (4)
  - Exfoliative rash [Unknown]
  - Off label use [Recovered/Resolved]
  - Eosinophilia [Unknown]
  - Febrile neutropenia [Recovered/Resolved]
